FAERS Safety Report 6399220-9 (Version None)
Quarter: 2009Q4

REPORT INFORMATION
  Report Type: 
  Country: None (occurrence: None)
  Receive Date: 20091008
  Receipt Date: 20090925
  Transmission Date: 20100525
  Serious: Yes (Hospitalization)
  Sender: FDA-Public Use
  Company Number: 2009S1000300

PATIENT
  Age: 77 Year
  Sex: Female

DRUGS (10)
  1. SORIATANE [Suspect]
     Indication: SEBORRHOEA
     Dosage: 25 MG;QD; PO
     Route: 048
     Dates: start: 20090401, end: 20090529
  2. BUFLOMEDIL (BUFLOMEDIL) [Suspect]
     Indication: DRUG USE FOR UNKNOWN INDICATION
     Dates: end: 20090101
  3. SELOKEN [Concomitant]
  4. EFFEXOR [Concomitant]
  5. KARDEGIC [Concomitant]
  6. RAMIPRIL [Suspect]
     Indication: DRUG USE FOR UNKNOWN INDICATION
     Dates: end: 20090101
  7. ATORVASTATIN CALCIUM [Suspect]
     Indication: DRUG USE FOR UNKNOWN INDICATION
     Dates: end: 20090101
  8. HUMALOG [Concomitant]
  9. HUMAJECT 1 [Concomitant]
  10. DEXERYL [Concomitant]

REACTIONS (6)
  - ECZEMA [None]
  - EOSINOPHILIA [None]
  - HAEMOGLOBIN DECREASED [None]
  - SKIN FISSURES [None]
  - TOXIC SKIN ERUPTION [None]
  - WOUND SECRETION [None]
